FAERS Safety Report 10085343 (Version 3)
Quarter: 2014Q2

REPORT INFORMATION
  Report Type: Spontaneous
  Country: CZ (occurrence: CZ)
  Receive Date: 20140417
  Receipt Date: 20140501
  Transmission Date: 20141212
  Serious: Yes (Other)
  Sender: FDA-Public Use
  Company Number: CZ-MERCK-1404CZE005715

PATIENT
  Age: 60 Year
  Sex: Male
  Weight: 93 kg

DRUGS (7)
  1. VICTRELIS [Suspect]
     Indication: HEPATITIS C
     Dosage: 800 MG TID
     Route: 048
     Dates: start: 20140218, end: 20140312
  2. PEGINTRON [Suspect]
     Indication: HEPATITIS C
     Dosage: 150 MICROGRAM, QW
     Route: 058
  3. REBETOL [Suspect]
     Indication: HEPATITIS C
     Dosage: 600 MG BID
     Route: 048
  4. PRESTARIUM NEO FORTE [Concomitant]
  5. CONCOR [Concomitant]
     Dosage: 2.5 DF QD
  6. EBRANTIL [Concomitant]
     Indication: HYPERTENSION
     Dosage: 30 MG BID
     Route: 048
  7. CIPRALEX [Concomitant]
     Indication: DEPRESSION

REACTIONS (4)
  - Transfusion [Unknown]
  - Pneumonia mycoplasmal [Recovered/Resolved]
  - Anaemia [Unknown]
  - Fibrin D dimer increased [Unknown]
